FAERS Safety Report 25616627 (Version 1)
Quarter: 2025Q3

REPORT INFORMATION
  Report Type: Report from Study
  Country: CA (occurrence: CA)
  Receive Date: 20250729
  Receipt Date: 20250729
  Transmission Date: 20251020
  Serious: Yes (Other)
  Sender: UCB
  Company Number: CA-UCBSA-2025045979

PATIENT
  Age: 35 Year
  Sex: Female

DRUGS (5)
  1. CERTOLIZUMAB PEGOL [Suspect]
     Active Substance: CERTOLIZUMAB PEGOL
     Indication: Ankylosing spondylitis
     Dates: start: 20230502, end: 202507
  2. CERTOLIZUMAB PEGOL [Suspect]
     Active Substance: CERTOLIZUMAB PEGOL
     Dosage: 200 MILLIGRAM, WEEKLY (QW)
     Route: 058
     Dates: start: 20250718
  3. CLONAZEPAM [Concomitant]
     Active Substance: CLONAZEPAM
     Indication: Product used for unknown indication
  4. METHYLPHENIDATE HYDROCHLORIDE [Concomitant]
     Active Substance: METHYLPHENIDATE HYDROCHLORIDE
     Indication: Product used for unknown indication
  5. WELLBUTRIN [Concomitant]
     Active Substance: BUPROPION HYDROCHLORIDE
     Indication: Product used for unknown indication

REACTIONS (2)
  - Ankylosing spondylitis [Unknown]
  - Off label use [Unknown]

NARRATIVE: CASE EVENT DATE: 20250718
